FAERS Safety Report 5027424-6 (Version None)
Quarter: 2006Q2

REPORT INFORMATION
  Report Type: 
  Country: None (occurrence: None)
  Receive Date: 20060501
  Receipt Date: 20060113
  Transmission Date: 20061013
  Serious: No
  Sender: FDA-Public Use
  Company Number: 200610261BWH

PATIENT
  Age: 59 Year
  Sex: Male

DRUGS (3)
  1. SORAFENIB [Suspect]
     Indication: RENAL CELL CARCINOMA STAGE UNSPECIFIED
     Dosage: 400 MG, BID, ORAL
     Route: 048
     Dates: start: 20060105
  2. PREVACID [Concomitant]
  3. NORVASC [Concomitant]

REACTIONS (2)
  - PANCREATITIS [None]
  - PRURITUS [None]
